FAERS Safety Report 15209072 (Version 3)
Quarter: 2018Q3

REPORT INFORMATION
  Report Type: Spontaneous
  Country: US (occurrence: US)
  Receive Date: 20180727
  Receipt Date: 20180822
  Transmission Date: 20181010
  Serious: Yes (Death, Hospitalization)
  Sender: FDA-Public Use
  Company Number: US-TEVA-2018-US-930548

PATIENT
  Sex: Male
  Weight: 109 kg

DRUGS (6)
  1. SYNRIBO [Suspect]
     Active Substance: OMACETAXINE MEPESUCCINATE
     Indication: CHRONIC MYELOID LEUKAEMIA
     Route: 058
     Dates: start: 20170615
  2. SYNRIBO [Suspect]
     Active Substance: OMACETAXINE MEPESUCCINATE
     Dates: start: 201510, end: 20151222
  3. XANAX [Concomitant]
     Active Substance: ALPRAZOLAM
  4. SYNRIBO [Suspect]
     Active Substance: OMACETAXINE MEPESUCCINATE
     Route: 058
     Dates: start: 20161215
  5. OXYCODONE [Concomitant]
     Active Substance: OXYCODONE
  6. COMPAZINE [Concomitant]
     Active Substance: PROCHLORPERAZINE MALEATE

REACTIONS (15)
  - Haemoglobin decreased [Unknown]
  - Arthralgia [Unknown]
  - Asthenia [Unknown]
  - Treatment noncompliance [Unknown]
  - White blood cell count decreased [Unknown]
  - Death [Fatal]
  - Balance disorder [Unknown]
  - Platelet count abnormal [Unknown]
  - Bone pain [Unknown]
  - Feeling abnormal [Unknown]
  - Drug dose omission [Unknown]
  - Upper respiratory tract infection [Unknown]
  - Vomiting [Unknown]
  - Influenza like illness [Unknown]
  - Pain [Unknown]
